FAERS Safety Report 7716254-X (Version None)
Quarter: 2011Q3

REPORT INFORMATION
  Report Type: 
  Country: None (occurrence: None)
  Receive Date: 20110812
  Receipt Date: 20101014
  Transmission Date: 20111222
  Serious: Yes (Other)
  Sender: FDA-Public Use
  Company Number: 2010SP055229

PATIENT
  Age: 65 Year
  Sex: Female

DRUGS (11)
  1. REMERON [Suspect]
     Indication: DEPRESSION
     Dosage: 1.5 DF;QD
     Dates: start: 20100211
  2. ZOLOFT [Concomitant]
  3. AMBIEN [Concomitant]
  4. CLONAZEPAM [Concomitant]
  5. SINGULAIR [Concomitant]
  6. SYNTHROID [Concomitant]
  7. AROMASIN [Concomitant]
  8. LIPITOR [Concomitant]
  9. ASPIRIN [Concomitant]
  10. WELLBUTRIN [Concomitant]
  11. VITAMIN TAB [Concomitant]

REACTIONS (1)
  - LEUKOPENIA [None]
